FAERS Safety Report 5836908-X (Version None)
Quarter: 2008Q3

REPORT INFORMATION
  Report Type: 
  Country: None (occurrence: None)
  Receive Date: 20080805
  Receipt Date: 20080726
  Transmission Date: 20090109
  Serious: Yes (Other)
  Sender: FDA-Public Use
  Company Number: CHPA2008US12839

PATIENT
  Age: 40 Year
  Sex: Male

DRUGS (1)
  1. EX-LAX REG STR LAX PILLS SENNA (NCH)(SENNA GLYCOSIDES (CA SALTS OF PUR [Suspect]
     Indication: CONSTIPATION
     Dosage: 60 MG, ONCE/SINGLE, ORAL
     Route: 048
     Dates: start: 20080725, end: 20080725

REACTIONS (2)
  - BLOOD URINE PRESENT [None]
  - INCORRECT DOSE ADMINISTERED [None]
